FAERS Safety Report 15324845 (Version 1)
Quarter: 2018Q3

REPORT INFORMATION
  Report Type: Spontaneous
  Country: US (occurrence: US)
  Receive Date: 20180822
  Receipt Date: 20180822
  Transmission Date: 20181010
  Serious: No
  Sender: FDA-Public Use
  Company Number: None

PATIENT
  Age: 52 Year
  Sex: Male

DRUGS (1)
  1. ZORTRESS [Suspect]
     Active Substance: EVEROLIMUS
     Indication: PROPHYLAXIS AGAINST TRANSPLANT REJECTION

REACTIONS (5)
  - Treatment noncompliance [None]
  - Therapy change [None]
  - Fluid retention [None]
  - Incorrect dose administered [None]
  - Drug dose omission [None]

NARRATIVE: CASE EVENT DATE: 20180807
